FAERS Safety Report 8586319-1 (Version None)
Quarter: 2012Q3

REPORT INFORMATION
  Report Type: 
  Country: None (occurrence: None)
  Receive Date: 20120730
  Receipt Date: 20120717
  Transmission Date: 20120928
  Serious: Yes (Hospitalization)
  Sender: FDA-Public Use
  Company Number: MPS1-1000726

PATIENT
  Age: 5 Year
  Sex: Female

DRUGS (1)
  1. ALDURAZYME [Suspect]
     Indication: MUCOPOLYSACCHARIDOSIS I
     Dosage: 10.4 MG, QW, INTRAVENOUS
     Route: 042
     Dates: start: 20080101

REACTIONS (2)
  - PILONIDAL CYST [None]
  - NEUROLOGICAL DECOMPENSATION [None]
